FAERS Safety Report 6861234-X (Version None)
Quarter: 2010Q3

REPORT INFORMATION
  Report Type: 
  Country: None (occurrence: None)
  Receive Date: 20100720
  Receipt Date: 20100715
  Transmission Date: 20110219
  Serious: Yes (Death)
  Sender: FDA-Public Use
  Company Number: US-CELGENEUS-163-21880-10071266

PATIENT
  Sex: Male

DRUGS (4)
  1. REVLIMID [Suspect]
     Indication: MULTIPLE MYELOMA
     Route: 048
     Dates: start: 20100201, end: 20100101
  2. REVLIMID [Suspect]
     Route: 048
     Dates: start: 20090601
  3. REVLIMID [Suspect]
     Route: 048
     Dates: start: 20090101
  4. REVLIMID [Suspect]
     Route: 048
     Dates: start: 20070801

REACTIONS (1)
  - MULTIPLE MYELOMA [None]
